FAERS Safety Report 15273767 (Version 2)
Quarter: 2018Q3

REPORT INFORMATION
  Report Type: Spontaneous
  Country: US (occurrence: US)
  Receive Date: 20180813
  Receipt Date: 20180918
  Transmission Date: 20181010
  Serious: No
  Sender: FDA-Public Use
  Company Number: US-ASTRAZENECA-2018SE43501

PATIENT
  Age: 665 Month
  Sex: Female
  Weight: 90.7 kg

DRUGS (1)
  1. BYDUREON [Suspect]
     Active Substance: EXENATIDE
     Indication: DIABETES MELLITUS
     Route: 058
     Dates: start: 201803

REACTIONS (5)
  - Underdose [Unknown]
  - Device occlusion [Unknown]
  - Intentional product misuse [Unknown]
  - Blood glucose abnormal [Unknown]
  - Product leakage [Unknown]

NARRATIVE: CASE EVENT DATE: 201803
